FAERS Safety Report 15928574 (Version 1)
Quarter: 2019Q1

REPORT INFORMATION
  Report Type: Spontaneous
  Country: CN (occurrence: CN)
  Receive Date: 20190206
  Receipt Date: 20190206
  Transmission Date: 20190417
  Serious: Yes (Hospitalization)
  Sender: FDA-Public Use
  Company Number: CN-ASTRAZENECA-2019SE21046

PATIENT
  Sex: Male
  Weight: 65 kg

DRUGS (1)
  1. TICAGRELOR. [Suspect]
     Active Substance: TICAGRELOR
     Indication: PLATELET DISORDER
     Route: 048
     Dates: start: 20181117, end: 20181123

REACTIONS (2)
  - Tachypnoea [Recovering/Resolving]
  - Dyspnoea [Recovering/Resolving]
